FAERS Safety Report 7710461-8 (Version None)
Quarter: 2011Q3

REPORT INFORMATION
  Report Type: 
  Country: None (occurrence: None)
  Receive Date: 20110825
  Receipt Date: 20110815
  Transmission Date: 20111222
  Serious: Yes (Other)
  Sender: FDA-Public Use
  Company Number: US-BAXTER-2011BH026991

PATIENT
  Age: 27 Year
  Sex: Female

DRUGS (2)
  1. PHENYLEPHRINE HCL [Suspect]
     Indication: BLOOD PRESSURE MANAGEMENT
     Route: 065
  2. LIDOCAINE AND EPINEPHRINE [Suspect]
     Indication: EPIDURAL ANAESTHESIA
     Route: 065

REACTIONS (2)
  - VENTRICULAR TACHYCARDIA [None]
  - MATERNAL EXPOSURE DURING PREGNANCY [None]
